FAERS Safety Report 23382608 (Version 1)
Quarter: 2024Q1

REPORT INFORMATION
  Report Type: Spontaneous
  Country: US (occurrence: US)
  Receive Date: 20240109
  Receipt Date: 20240109
  Transmission Date: 20240410
  Serious: No
  Sender: FDA-Public Use
  Company Number: US-GSK-US2024000638

PATIENT
  Sex: Male

DRUGS (2)
  1. NUCALA [Suspect]
     Active Substance: MEPOLIZUMAB
     Indication: Asthma
     Dosage: 100 MG EVERY 28 DAYS
  2. PREDNISONE [Concomitant]
     Active Substance: PREDNISONE
     Indication: Bone density abnormal
     Dosage: UNK

REACTIONS (1)
  - Bone density abnormal [Not Recovered/Not Resolved]
